FAERS Safety Report 5605570-3 (Version None)
Quarter: 2008Q1

REPORT INFORMATION
  Report Type: 
  Country: None (occurrence: None)
  Receive Date: 20080125
  Receipt Date: 20080125
  Transmission Date: 20080703
  Serious: No
  Sender: FDA-Public Use
  Company Number: None

PATIENT
  Sex: Female

DRUGS (1)
  1. LETAIRIS [Suspect]
     Dosage: 5MG QD PO
     Route: 048
     Dates: start: 20071201, end: 20080124

REACTIONS (3)
  - OEDEMA [None]
  - SINUS DISORDER [None]
  - SWELLING [None]
